FAERS Safety Report 25744093 (Version 1)
Quarter: 2025Q3

REPORT INFORMATION
  Report Type: Spontaneous
  Country: US (occurrence: US)
  Receive Date: 20250831
  Receipt Date: 20250831
  Transmission Date: 20251021
  Serious: No
  Sender: SANOFI AVENTIS
  Company Number: US-SA-2025SA221286

PATIENT
  Age: 33 Year
  Sex: Male
  Weight: 84.807 kg

DRUGS (8)
  1. DUPIXENT [Suspect]
     Active Substance: DUPILUMAB
     Indication: Eosinophilic oesophagitis
     Route: 058
     Dates: start: 20250728, end: 20250728
  2. MELATONIN [Concomitant]
     Active Substance: MELATONIN
     Dates: start: 20250716
  3. LAMOTRIGINE [Concomitant]
     Active Substance: LAMOTRIGINE
     Dates: start: 20250716
  4. OMEPRAZOLE [Concomitant]
     Active Substance: OMEPRAZOLE
     Dates: start: 20250716
  5. RISPERIDONE [Concomitant]
     Active Substance: RISPERIDONE
     Dates: start: 20250716
  6. VITAMIN D2 [Concomitant]
     Active Substance: ERGOCALCIFEROL
     Dates: start: 20250716
  7. FLUTICASONE [Concomitant]
     Active Substance: FLUTICASONE
     Dates: start: 20250706
  8. PROPRANOLOL [Concomitant]
     Active Substance: PROPRANOLOL HYDROCHLORIDE
     Dates: start: 20250716

REACTIONS (3)
  - Injection site urticaria [Recovering/Resolving]
  - Injection site erythema [Recovered/Resolved]
  - Incorrect dose administered [Unknown]

NARRATIVE: CASE EVENT DATE: 20250728
